FAERS Safety Report 6574195-8 (Version None)
Quarter: 2010Q1

REPORT INFORMATION
  Report Type: 
  Country: None (occurrence: None)
  Receive Date: 20100208
  Receipt Date: 20100128
  Transmission Date: 20100710
  Serious: No
  Sender: FDA-Public Use
  Company Number: US-BAYER-201013066NA

PATIENT
  Age: 42 Year
  Sex: Female
  Weight: 109 kg

DRUGS (1)
  1. MAGNEVIST [Suspect]
     Indication: BRAIN NEOPLASM
     Dosage: TOTAL DAILY DOSE: 20 ML  UNIT DOSE: 20 ML
     Route: 042
     Dates: start: 20100128, end: 20100128

REACTIONS (1)
  - VOMITING [None]
